FAERS Safety Report 16931995 (Version 2)
Quarter: 2019Q4

REPORT INFORMATION
  Report Type: Spontaneous
  Country: SE (occurrence: SE)
  Receive Date: 20191017
  Receipt Date: 20191101
  Transmission Date: 20200122
  Serious: Yes (Other)
  Sender: FDA-Public Use
  Company Number: SE-JNJFOC-20191017051

PATIENT
  Age: 29 Year
  Sex: Male

DRUGS (2)
  1. PALIPERIDONE PALMITATE [Suspect]
     Active Substance: PALIPERIDONE PALMITATE
     Indication: PSYCHOTIC DISORDER
     Route: 030
  2. PALIPERIDONE PALMITATE [Suspect]
     Active Substance: PALIPERIDONE PALMITATE
     Indication: DRUG ABUSE

REACTIONS (8)
  - Coordination abnormal [Unknown]
  - Drug eruption [Unknown]
  - Balance disorder [Unknown]
  - Apathy [Unknown]
  - Fatigue [Unknown]
  - Blunted affect [Unknown]
  - Suicide attempt [Unknown]
  - Loss of consciousness [Unknown]
